FAERS Safety Report 4684601-1 (Version None)
Quarter: 2005Q2

REPORT INFORMATION
  Report Type: 
  Country: None (occurrence: None)
  Receive Date: 20050603
  Receipt Date: 20050525
  Transmission Date: 20051028
  Serious: Yes (Hospitalization)
  Sender: FDA-Public Use
  Company Number: 2005079857

PATIENT
  Age: 57 Year
  Sex: Female
  Weight: 81.6475 kg

DRUGS (14)
  1. LIPITOR [Suspect]
     Indication: BLOOD CHOLESTEROL INCREASED
     Dosage: (1 IN 1 D), ORAL
     Route: 048
     Dates: start: 20050101, end: 20050401
  2. PROZAC [Concomitant]
  3. XANAX [Concomitant]
  4. PRILOSEC [Concomitant]
  5. ELAVIL [Concomitant]
  6. TYLENOL [Concomitant]
  7. ADVIL [Concomitant]
  8. CENTRUM (MINERALS NOS, VITAMINS NOS) [Concomitant]
  9. FOLIC ACID [Concomitant]
  10. CO-ENZYNE Q-10 (BIOFLAVONOIDS, LECITHIN, QUERCETIN, UBIDECARENONE) [Concomitant]
  11. CHROMIUM PICOLINATE (CHROMIUM PICOLINATE) [Concomitant]
  12. ACTONEL [Concomitant]
  13. ALL OTHER THERAPEUTIC PRODUCTS (ALL OTHER THERAPEUTIC PRODUCTS) [Concomitant]
  14. ASPIRIN [Concomitant]

REACTIONS (8)
  - BACK PAIN [None]
  - MYALGIA [None]
  - MYOCARDIAL INFARCTION [None]
  - NAUSEA [None]
  - NECK PAIN [None]
  - PAIN [None]
  - PAIN IN EXTREMITY [None]
  - PAIN IN JAW [None]
